FAERS Safety Report 23737613 (Version 3)
Quarter: 2024Q2

REPORT INFORMATION
  Report Type: Spontaneous
  Country: TR (occurrence: TR)
  Receive Date: 20240412
  Receipt Date: 20240515
  Transmission Date: 20240715
  Serious: Yes (Other)
  Sender: FDA-Public Use
  Company Number: TR-002147023-NVSC2024TR076293

PATIENT
  Sex: Female

DRUGS (3)
  1. GLIVEC [Suspect]
     Active Substance: IMATINIB MESYLATE
     Indication: Chronic myeloid leukaemia
     Dosage: UNK
     Route: 065
  2. DASATINIB [Suspect]
     Active Substance: DASATINIB
     Indication: Chronic myeloid leukaemia
     Dosage: UNK
     Route: 065
  3. BOSUTINIB [Concomitant]
     Active Substance: BOSUTINIB
     Indication: Product used for unknown indication
     Dosage: 500 MG, QD
     Route: 065

REACTIONS (2)
  - Aplastic anaemia [Unknown]
  - Drug intolerance [Unknown]
